FAERS Safety Report 8885012 (Version 1)
Quarter: 2012Q4

REPORT INFORMATION
  Report Type: 
  Country: US (occurrence: US)
  Receive Date: 20121102
  Receipt Date: 20121102
  Transmission Date: 20130627
  Serious: No
  Sender: FDA-Public Use
  Company Number: US-PFIZER INC-2012273047

PATIENT
  Age: 54 Year
  Sex: Male
  Weight: 73 kg

DRUGS (2)
  1. LIPITOR [Suspect]
     Indication: HIGH CHOLESTEROL
     Dosage: 10 mg, 1x/day
     Route: 048
     Dates: start: 2004
  2. LIPITOR [Suspect]
     Dosage: 20 mg, 1x/day
     Route: 048

REACTIONS (2)
  - Drug effect decreased [Unknown]
  - Insomnia [Recovered/Resolved]
